FAERS Safety Report 15342851 (Version 2)
Quarter: 2018Q4

REPORT INFORMATION
  Report Type: Spontaneous
  Country: US (occurrence: US)
  Receive Date: 20180903
  Receipt Date: 20181130
  Transmission Date: 20190204
  Serious: Yes (Hospitalization, Other)
  Sender: FDA-Public Use
  Company Number: US-JNJFOC-20180829870

PATIENT
  Age: 82 Year
  Sex: Female

DRUGS (3)
  1. XARELTO [Suspect]
     Active Substance: RIVAROXABAN
     Indication: ATRIAL FIBRILLATION
     Dosage: VARYING DOSES OF 15 MG AND 20 MG
     Route: 048
     Dates: start: 201404, end: 20160821
  2. XARELTO [Suspect]
     Active Substance: RIVAROXABAN
     Indication: CEREBROVASCULAR ACCIDENT PROPHYLAXIS
     Dosage: VARYING DOSES OF 15 MG AND 20 MG
     Route: 048
     Dates: start: 201404, end: 20160821
  3. XARELTO [Suspect]
     Active Substance: RIVAROXABAN
     Indication: THROMBOSIS PROPHYLAXIS
     Dosage: VARYING DOSES OF 15 MG AND 20 MG
     Route: 048
     Dates: start: 201404, end: 20160821

REACTIONS (2)
  - Haemorrhage [Unknown]
  - Gastrointestinal haemorrhage [Recovered/Resolved]

NARRATIVE: CASE EVENT DATE: 201608
